FAERS Safety Report 23314636 (Version 1)
Quarter: 2023Q4

REPORT INFORMATION
  Report Type: Spontaneous
  Country: AT (occurrence: AT)
  Receive Date: 20231219
  Receipt Date: 20231219
  Transmission Date: 20240109
  Serious: Yes (Congenital Anomaly)
  Sender: FDA-Public Use
  Company Number: AT-SUN PHARMACEUTICAL INDUSTRIES LTD-2023RR-423918

PATIENT

DRUGS (1)
  1. LEVETIRACETAM [Suspect]
     Active Substance: LEVETIRACETAM
     Indication: Epilepsy
     Dosage: 3000 MILLIGRAM, DAILY
     Route: 064
     Dates: start: 2012, end: 201305

REACTIONS (4)
  - Osteochondrosis [Unknown]
  - Maternal exposure during pregnancy [Unknown]
  - Dysmorphism [Unknown]
  - Congenital multiplex arthrogryposis [Unknown]

NARRATIVE: CASE EVENT DATE: 20120101
